FAERS Safety Report 22268510 (Version 1)
Quarter: 2023Q2

REPORT INFORMATION
  Report Type: Spontaneous
  Country: FR (occurrence: FR)
  Receive Date: 20230430
  Receipt Date: 20230430
  Transmission Date: 20230721
  Serious: Yes (Other)
  Sender: FDA-Public Use
  Company Number: None

PATIENT
  Age: 25 Year
  Sex: Female

DRUGS (2)
  1. CELLCEPT [Suspect]
     Active Substance: MYCOPHENOLATE MOFETIL
     Indication: Systemic lupus erythematosus
     Route: 065
     Dates: start: 202206, end: 20230407
  2. KEPPRA [Suspect]
     Active Substance: LEVETIRACETAM
     Indication: Product dispensing error
     Route: 065
     Dates: start: 20230407, end: 20230414

REACTIONS (3)
  - Hypotension [Not Recovered/Not Resolved]
  - Product dispensing error [Unknown]
  - Vertigo [Not Recovered/Not Resolved]

NARRATIVE: CASE EVENT DATE: 20230407
